FAERS Safety Report 21064755 (Version 1)
Quarter: 2022Q3

REPORT INFORMATION
  Report Type: Spontaneous
  Country: US (occurrence: None)
  Receive Date: 20220710
  Receipt Date: 20220710
  Transmission Date: 20221027
  Serious: Yes (unspecified)
  Sender: FDA-Public Use
  Company Number: None

PATIENT
  Age: 68 Year
  Sex: Male
  Weight: 65.25 kg

DRUGS (9)
  1. ENTACAPONE [Suspect]
     Active Substance: ENTACAPONE
     Dosage: OTHER QUANTITY : 1 TABLET(S);?FREQUENCY : EVERY 4 HOURS;?
     Route: 048
     Dates: start: 20220709, end: 20220710
  2. LEVADOPA [Concomitant]
  3. CARBIDOPA [Concomitant]
     Active Substance: CARBIDOPA
  4. FLOMAX [Concomitant]
     Active Substance: TAMSULOSIN HYDROCHLORIDE
  5. XEDAGO [Concomitant]
  6. MAGNESIUM [Concomitant]
     Active Substance: MAGNESIUM
  7. BLACK SEED OIL [Concomitant]
  8. BACOPA MONNERI [Concomitant]
  9. MANNITOL [Concomitant]
     Active Substance: MANNITOL

REACTIONS (5)
  - Disorientation [None]
  - Confusional state [None]
  - Gait inability [None]
  - Dyspnoea [None]
  - Loss of personal independence in daily activities [None]

NARRATIVE: CASE EVENT DATE: 20220710
